FAERS Safety Report 9779172 (Version 2)
Quarter: 2013Q4

REPORT INFORMATION
  Report Type: Spontaneous
  Country: US (occurrence: US)
  Receive Date: 20131223
  Receipt Date: 20131223
  Transmission Date: 20140711
  Serious: No
  Sender: FDA-Public Use
  Company Number: US-ENDO PHARMACEUTICALS INC.-OPCR20130352

PATIENT
  Age: 52 Year
  Sex: Male

DRUGS (4)
  1. OPANA ER 30MG [Suspect]
     Indication: PAIN
     Route: 048
  2. OPANA ER 30MG [Suspect]
     Indication: CONGENITAL CYSTIC KIDNEY DISEASE
  3. ENBREL [Concomitant]
     Indication: ANKYLOSING SPONDYLITIS
     Dosage: UNKNOWN
     Route: 065
     Dates: end: 201308
  4. ENBREL [Concomitant]
     Indication: PAIN

REACTIONS (4)
  - Renal cyst infection [Not Recovered/Not Resolved]
  - Oropharyngeal pain [Not Recovered/Not Resolved]
  - Dysphonia [Not Recovered/Not Resolved]
  - Drug ineffective [Not Recovered/Not Resolved]
